FAERS Safety Report 8498319-0 (Version None)
Quarter: 2012Q3

REPORT INFORMATION
  Report Type: 
  Country: None (occurrence: None)
  Receive Date: 20120709
  Receipt Date: 20120625
  Transmission Date: 20120928
  Serious: No
  Sender: FDA-Public Use
  Company Number: US-ROCHE-1063006

PATIENT
  Sex: Female
  Weight: 76 kg

DRUGS (2)
  1. COPEGUS [Suspect]
     Indication: HEPATITIS C
     Route: 048
  2. PSI-7977 [Suspect]
     Indication: HEPATITIS C
     Route: 048

REACTIONS (1)
  - OVERDOSE [None]
